FAERS Safety Report 13713231 (Version 1)
Quarter: 2017Q3

REPORT INFORMATION
  Report Type: Spontaneous
  Country: US (occurrence: US)
  Receive Date: 20170704
  Receipt Date: 20170704
  Transmission Date: 20171127
  Serious: No
  Sender: FDA-Public Use
  Company Number: US-TEVA-730892USA

PATIENT
  Age: 56 Year
  Sex: Female

DRUGS (3)
  1. NAPROSYN [Suspect]
     Active Substance: NAPROXEN
     Indication: ARTHRALGIA
     Dates: start: 20160201, end: 20160402
  2. PREDNISONE. [Suspect]
     Active Substance: PREDNISONE
     Dosage: TAPER
     Dates: start: 20160402
  3. NAPROSYN [Suspect]
     Active Substance: NAPROXEN
     Indication: JOINT SWELLING

REACTIONS (2)
  - Joint swelling [Unknown]
  - Arthralgia [Unknown]

NARRATIVE: CASE EVENT DATE: 201604
